FAERS Safety Report 6876033-2 (Version None)
Quarter: 2010Q3

REPORT INFORMATION
  Report Type: 
  Country: None (occurrence: None)
  Receive Date: 20100727
  Receipt Date: 20100715
  Transmission Date: 20110219
  Serious: Yes (Hospitalization, Other)
  Sender: FDA-Public Use
  Company Number: US-CELGENEUS-163-21880-10040091

PATIENT

DRUGS (3)
  1. REVLIMID [Suspect]
     Indication: MULTIPLE MYELOMA
     Route: 048
     Dates: start: 20100312
  2. REVLIMID [Suspect]
     Route: 048
     Dates: start: 20100504
  3. VELCADE [Suspect]
     Indication: PRODUCT USED FOR UNKNOWN INDICATION
     Route: 065
     Dates: start: 20100129, end: 20100310

REACTIONS (3)
  - INTERSTITIAL LUNG DISEASE [None]
  - PNEUMONIA PRIMARY ATYPICAL [None]
  - PULMONARY FIBROSIS [None]
